FAERS Safety Report 8794205 (Version 1)
Quarter: 2012Q4

REPORT INFORMATION
  Report Type: 
  Country: DE (occurrence: DE)
  Receive Date: 20120917
  Receipt Date: 20120917
  Transmission Date: 20130627
  Serious: Yes (Other)
  Sender: FDA-Public Use
  Company Number: DE-ELI_LILLY_AND_COMPANY-DE201209001453

PATIENT
  Sex: Male

DRUGS (12)
  1. FORSTEO [Suspect]
     Indication: OSTEOPOROSIS
     Dosage: UNK, qd
     Route: 058
     Dates: start: 20111206
  2. PREDNISOLON [Concomitant]
     Dosage: 5 mg, qd
     Route: 065
  3. ASS [Concomitant]
     Dosage: UNK, unknown
     Route: 065
  4. CALCILAC [Concomitant]
     Dosage: UNK, unknown
     Route: 065
  5. FERRO ^SANOL^ [Concomitant]
     Dosage: UNK, qd
     Route: 065
  6. LUMINAL [Concomitant]
     Dosage: UNK, bid
     Route: 065
  7. METOSUCCINAT [Concomitant]
     Dosage: UNK, unknown
     Route: 065
  8. PANTOPRAZOL [Concomitant]
     Dosage: UNK, unknown
     Route: 065
  9. SIMVAHEXAL [Concomitant]
     Dosage: UNK, unknown
     Route: 065
  10. ANTIBIOTICS [Concomitant]
     Indication: VIRAL INFECTION
     Dosage: UNK, unknown
     Route: 065
  11. SULFASALAZIN [Concomitant]
     Dosage: UNK, unknown
     Route: 065
  12. TORASEMID [Concomitant]
     Dosage: UNK, unknown
     Route: 065

REACTIONS (3)
  - Dyspnoea [Not Recovered/Not Resolved]
  - Pulmonary oedema [Unknown]
  - Insomnia [Not Recovered/Not Resolved]
